FAERS Safety Report 8276729-4 (Version None)
Quarter: 2012Q2

REPORT INFORMATION
  Report Type: 
  Country: None (occurrence: None)
  Receive Date: 20120405
  Receipt Date: 20120328
  Transmission Date: 20120825
  Serious: Yes (Hospitalization)
  Sender: FDA-Public Use
  Company Number: 2012SP012170

PATIENT
  Age: 88 Year
  Sex: Female

DRUGS (11)
  1. ZYPREXA [Suspect]
     Indication: PRODUCT USED FOR UNKNOWN INDICATION
     Dosage: 5 MG;QD;PO
     Route: 048
     Dates: start: 20120111, end: 20120120
  2. ZYPREXA [Suspect]
     Indication: PRODUCT USED FOR UNKNOWN INDICATION
     Dosage: 5 MG;QD;PO
     Route: 048
     Dates: start: 20120124
  3. OXAZEPAM [Suspect]
     Indication: ABNORMAL BEHAVIOUR
     Dosage: 10 MG;BID;PO
     Route: 048
     Dates: start: 20111201
  4. MOVIPREP [Concomitant]
  5. MIRTAZAPINE [Suspect]
     Indication: PRODUCT USED FOR UNKNOWN INDICATION
     Dosage: 15 MG;QD;PO
     Route: 048
     Dates: start: 20120106
  6. IMOVANE (ZOPICLONE) [Suspect]
     Indication: PRODUCT USED FOR UNKNOWN INDICATION
     Dosage: 3.75 MG;QD;PO
     Route: 048
     Dates: start: 20120106
  7. MEMANTINE HCL [Suspect]
     Indication: SENILE DEMENTIA
     Dosage: 10 MG;QD;PO
  8. ASPIRIN [Concomitant]
  9. ACETAMINOPHEN [Concomitant]
  10. FURADANTIN [Concomitant]
  11. VITAMIN D [Concomitant]

REACTIONS (7)
  - AGGRESSION [None]
  - ABNORMAL BEHAVIOUR [None]
  - CONFUSIONAL STATE [None]
  - INCOHERENT [None]
  - BLOOD PRESSURE SYSTOLIC INCREASED [None]
  - DISORIENTATION [None]
  - BLOOD SODIUM DECREASED [None]
